FAERS Safety Report 4515039-5 (Version None)
Quarter: 2004Q4

REPORT INFORMATION
  Report Type: 
  Country: None (occurrence: None)
  Receive Date: 20041129
  Receipt Date: 20041129
  Transmission Date: 20050328
  Serious: Yes (Life-Threatening)
  Sender: FDA-Public Use
  Company Number: None

PATIENT
  Age: 82 Year
  Sex: Female
  Weight: 58.9676 kg

DRUGS (1)
  1. MILK OF MAGNESIA WITH MINERAL OI  BAYER [Suspect]
     Indication: CONSTIPATION
     Dates: start: 20041126, end: 20041126

REACTIONS (7)
  - ABNORMAL BEHAVIOUR [None]
  - ASTHENIA [None]
  - DIZZINESS [None]
  - DRUG INTERACTION [None]
  - MUSCLE CRAMP [None]
  - PAIN [None]
  - VOMITING [None]
